FAERS Safety Report 9665830 (Version 1)
Quarter: 2013Q4

REPORT INFORMATION
  Report Type: Report from Study
  Country: GB (occurrence: GB)
  Receive Date: 20131104
  Receipt Date: 20131104
  Transmission Date: 20140711
  Serious: Yes (Other)
  Sender: FDA-Public Use
  Company Number: GB-ASTELLAS-2013EU009500

PATIENT
  Sex: 0

DRUGS (4)
  1. TACROLIMUS SYSTEMIC [Suspect]
     Indication: INTESTINAL TRANSPLANT
     Dosage: UNK
     Route: 065
  2. TACROLIMUS SYSTEMIC [Suspect]
     Indication: ABDOMINAL WALL OPERATION
  3. CAMPATH [Concomitant]
     Indication: INTESTINAL TRANSPLANT
     Dosage: UNK
     Route: 065
  4. CAMPATH [Concomitant]
     Indication: ABDOMINAL WALL OPERATION

REACTIONS (2)
  - Off label use [Unknown]
  - Glomerular filtration rate decreased [Unknown]
